FAERS Safety Report 7843616-2 (Version None)
Quarter: 2011Q4

REPORT INFORMATION
  Report Type: 
  Country: None (occurrence: None)
  Receive Date: 20111025
  Receipt Date: 20111019
  Transmission Date: 20120403
  Serious: Yes (Death)
  Sender: FDA-Public Use
  Company Number: US-CELGENEUS-163-21880-11073138

PATIENT
  Sex: Male
  Weight: 80.358 kg

DRUGS (7)
  1. VICODIN [Concomitant]
     Indication: PAIN
     Dosage: 5-500
     Route: 065
     Dates: start: 20110415
  2. REVLIMID [Suspect]
     Indication: MULTIPLE MYELOMA
     Dosage: 10 MILLIGRAM
     Route: 048
     Dates: start: 20110329, end: 20110720
  3. FLEXERIL [Concomitant]
     Dosage: 5 MILLIGRAM
     Route: 065
     Dates: start: 20110405
  4. AREDIA [Concomitant]
     Route: 065
     Dates: start: 20110620
  5. DEXAMETHASONE [Concomitant]
     Dosage: 10 MILLIGRAM
     Route: 048
     Dates: start: 20110214
  6. COMPAZINE [Concomitant]
     Indication: NAUSEA
     Dosage: 10 MILLIGRAM
     Route: 048
     Dates: start: 20090831
  7. GABAPENTIN [Concomitant]
     Dosage: 100 MILLIGRAM
     Route: 065
     Dates: start: 20110408

REACTIONS (1)
  - MULTIPLE MYELOMA [None]
